FAERS Safety Report 11986520 (Version 1)
Quarter: 2016Q1

REPORT INFORMATION
  Report Type: Spontaneous
  Country: US (occurrence: None)
  Receive Date: 20160201
  Receipt Date: 20160201
  Transmission Date: 20160526
  Serious: No
  Sender: FDA-Public Use
  Company Number: None

PATIENT
  Sex: Male

DRUGS (2)
  1. HUMALOG [Suspect]
     Active Substance: INSULIN LISPRO
  2. INVOKANA [Suspect]
     Active Substance: CANAGLIFLOZIN

REACTIONS (3)
  - Loss of consciousness [None]
  - Blood glucose increased [None]
  - Impaired driving ability [None]
